FAERS Safety Report 4512934-8 (Version None)
Quarter: 2004Q4

REPORT INFORMATION
  Report Type: 
  Country: None (occurrence: None)
  Receive Date: 20041124
  Receipt Date: 20041110
  Transmission Date: 20050328
  Serious: Yes (Other)
  Sender: FDA-Public Use
  Company Number: USA041183729

PATIENT
  Sex: Female

DRUGS (1)
  1. SARAFEM [Suspect]
     Dates: start: 20040601, end: 20041009

REACTIONS (3)
  - AUTOIMMUNE HEPATITIS [None]
  - HEPATIC FAILURE [None]
  - WHITE BLOOD CELL COUNT DECREASED [None]
